FAERS Safety Report 11267897 (Version 1)
Quarter: 2015Q3

REPORT INFORMATION
  Report Type: Spontaneous
  Country: US (occurrence: US)
  Receive Date: 20150713
  Receipt Date: 20150713
  Transmission Date: 20151125
  Serious: Yes (Death, Hospitalization, Other)
  Sender: FDA-Public Use
  Company Number: US-MPIJNJ-2014MPI000607

PATIENT
  Age: 77 Year
  Sex: Male
  Weight: 85.81 kg

DRUGS (1)
  1. VELCADE [Suspect]
     Active Substance: BORTEZOMIB

REACTIONS (1)
  - Disease progression [Fatal]

NARRATIVE: CASE EVENT DATE: 20111205
